FAERS Safety Report 23629659 (Version 1)
Quarter: 2024Q1

REPORT INFORMATION
  Report Type: Spontaneous
  Country: JP (occurrence: JP)
  Receive Date: 20240314
  Receipt Date: 20240314
  Transmission Date: 20240410
  Serious: Yes (Life-Threatening, Hospitalization, Other)
  Sender: FDA-Public Use
  Company Number: JP-Nexus Pharma-000256

PATIENT
  Age: 58 Year
  Sex: Male

DRUGS (10)
  1. BUSULFAN [Suspect]
     Active Substance: BUSULFAN
     Indication: Lymphoma
     Dosage: ON DAYS -8 TO -5
     Dates: start: 202008
  2. THIOTEPA [Suspect]
     Active Substance: THIOTEPA
     Indication: Lymphoma
     Dosage: ON DAYS -4 TO -3
     Dates: start: 202008
  3. RITUXIMAB [Concomitant]
     Active Substance: RITUXIMAB
     Dosage: 600 MG PER BODY
     Dates: start: 201409
  4. CYCLOPHOSPHAMIDE [Concomitant]
     Active Substance: CYCLOPHOSPHAMIDE
     Dosage: 1200 MG PER BODY
     Dates: start: 201409
  5. DOXORUBICIN [Concomitant]
     Active Substance: DOXORUBICIN
     Dosage: 80 MG PER BODY
     Dates: start: 201409
  6. VINCRISTINE [Concomitant]
     Active Substance: VINCRISTINE
     Dosage: 2 MG PER BODY
     Dates: start: 201409
  7. PREDNISOLONE [Concomitant]
     Active Substance: PREDNISOLONE
     Dosage: 60 MG PER BODY
     Dates: start: 201409
  8. CYTARABINE [Concomitant]
     Active Substance: CYTARABINE
     Route: 037
     Dates: start: 201409
  9. METHOTREXATE [Concomitant]
     Active Substance: METHOTREXATE
     Dates: start: 201409
  10. GRANULOCYTE COLONY STIMULATING FACT [Concomitant]
     Dosage: 600 UG PER BODY

REACTIONS (2)
  - Platelet destruction increased [Recovered/Resolved]
  - Febrile neutropenia [Recovered/Resolved]
